FAERS Safety Report 6100290-3 (Version None)
Quarter: 2009Q1

REPORT INFORMATION
  Report Type: 
  Country: None (occurrence: None)
  Receive Date: 20090226
  Receipt Date: 20090217
  Transmission Date: 20090719
  Serious: No
  Sender: FDA-Public Use
  Company Number: 2009-191594-NL

PATIENT
  Age: 31 Year
  Sex: Male

DRUGS (1)
  1. NANDROLONE DECANOATE [Suspect]
     Dosage: 50 MG QD  1 WEEK 3 DAYS
     Route: 030

REACTIONS (5)
  - BLOOD LACTATE DEHYDROGENASE INCREASED [None]
  - PLEURAL EFFUSION [None]
  - PROTEIN TOTAL DECREASED [None]
  - TUBERCULOUS PLEURISY [None]
  - WEIGHT DECREASED [None]
